FAERS Safety Report 9626973 (Version 1)
Quarter: 2013Q4

REPORT INFORMATION
  Report Type: Report from Study
  Country: IT (occurrence: IT)
  Receive Date: 20131016
  Receipt Date: 20131016
  Transmission Date: 20140711
  Serious: Yes (Other)
  Sender: FDA-Public Use
  Company Number: IT-CELGENEUS-083-21880-13100791

PATIENT
  Age: 55 Year
  Sex: Female
  Weight: 77 kg

DRUGS (13)
  1. REVLIMID [Suspect]
     Indication: PLASMA CELL MYELOMA
     Dosage: 10 MILLIGRAM
     Route: 048
     Dates: start: 20130325
  2. CYCLOPHOSPHAMIDE [Suspect]
     Indication: PLASMA CELL MYELOMA
     Dosage: 850 MILLIGRAM
     Route: 041
     Dates: start: 20120801, end: 20120927
  3. CYCLOPHOSPHAMIDE [Suspect]
     Dosage: 850 MILLIGRAM
     Route: 041
     Dates: start: 20121115
  4. DEXAMETHASONE [Suspect]
     Indication: PLASMA CELL MYELOMA
     Dosage: 20 MILLIGRAM
     Route: 048
     Dates: start: 20120801, end: 20120927
  5. MELPHALAN [Suspect]
     Indication: PLASMA CELL MYELOMA
     Dosage: 100 MILLIGRAM/SQ. METER
     Route: 041
     Dates: start: 20130107, end: 20130108
  6. FILGRASTIM [Suspect]
     Indication: PLASMA CELL MYELOMA
     Dosage: 68 IU (INTERNATIONAL UNIT)
     Route: 058
     Dates: start: 20121109, end: 20121116
  7. VELCADE [Suspect]
     Indication: PLASMA CELL MYELOMA
     Dosage: 2.2 MILLIGRAM
     Route: 041
     Dates: start: 20120801, end: 20120927
  8. ZOMETA [Concomitant]
     Indication: PLASMA CELL MYELOMA
     Route: 041
     Dates: start: 20121127
  9. LANSOPRAZOLE [Concomitant]
     Indication: GASTRITIS PROPHYLAXIS
     Dosage: 30 MILLIGRAM
     Route: 048
     Dates: start: 20120801
  10. ACICLOVIR [Concomitant]
     Indication: ANTIVIRAL PROPHYLAXIS
     Dosage: 400 MILLIGRAM
     Route: 048
     Dates: start: 20120801
  11. BACTRIM [Concomitant]
     Indication: ANTIBIOTIC PROPHYLAXIS
     Route: 048
     Dates: start: 20120801
  12. CARDIOASPIRINE [Concomitant]
     Indication: THROMBOSIS PROPHYLAXIS
     Dosage: 100 MILLIGRAM
     Route: 048
     Dates: start: 20130820
  13. MYCOSTATIN [Concomitant]
     Indication: ANTIFUNGAL PROPHYLAXIS
     Dosage: 20 MILLILITER
     Route: 048
     Dates: start: 20120801

REACTIONS (1)
  - Malignant neoplasm of unknown primary site [Not Recovered/Not Resolved]
